FAERS Safety Report 6112391-4 (Version None)
Quarter: 2009Q1

REPORT INFORMATION
  Report Type: 
  Country: None (occurrence: None)
  Receive Date: 20090312
  Receipt Date: 20090303
  Transmission Date: 20090719
  Serious: Yes (Hospitalization)
  Sender: FDA-Public Use
  Company Number: DE-TEVA-187010ISR

PATIENT
  Sex: Male
  Weight: 90 kg

DRUGS (9)
  1. FLUOROURACIL [Suspect]
     Indication: COLORECTAL CANCER METASTATIC
     Route: 042
     Dates: start: 20071030, end: 20080226
  2. FLUOROURACIL [Concomitant]
  3. IRINOTECAN HCL [Suspect]
     Indication: COLORECTAL CANCER METASTATIC
     Route: 042
     Dates: start: 20071030, end: 20080226
  4. FOLINIC ACID [Suspect]
     Indication: COLORECTAL CANCER METASTATIC
     Route: 042
     Dates: start: 20071030, end: 20080226
  5. BEVACIZUMAB [Suspect]
     Indication: COLORECTAL CANCER METASTATIC
     Dates: start: 20071030, end: 20080226
  6. ENOXAPARIN SODIUM [Concomitant]
     Dates: start: 20071210
  7. FENTANYL [Concomitant]
  8. METAMIZOLE SODIUM [Concomitant]
  9. SODIUM PICOSULFATE [Concomitant]
     Dates: start: 20080227

REACTIONS (1)
  - DYSPNOEA [None]
